FAERS Safety Report 5464821-9 (Version None)
Quarter: 2007Q3

REPORT INFORMATION
  Report Type: 
  Country: None (occurrence: None)
  Receive Date: 20070820
  Receipt Date: 20070621
  Transmission Date: 20080115
  Serious: No
  Sender: FDA-Public Use
  Company Number: TPA2007A01358

PATIENT
  Age: 85 Year
  Sex: Female
  Weight: 56.246 kg

DRUGS (3)
  1. ROZEREM [Suspect]
     Indication: INSOMNIA
     Dosage: 8 MG, HS, PER ORAL
     Route: 048
     Dates: start: 20061201, end: 20061201
  2. LOTREL [Concomitant]
  3. LUTEIN (XANTOFYL) [Concomitant]

REACTIONS (1)
  - DRUG INEFFECTIVE [None]
